FAERS Safety Report 9509437 (Version 2)
Quarter: 2013Q3

REPORT INFORMATION
  Report Type: Spontaneous
  Country: US (occurrence: US)
  Receive Date: 20130909
  Receipt Date: 20130909
  Transmission Date: 20140515
  Serious: No
  Sender: FDA-Public Use
  Company Number: US-BRISTOL-MYERS SQUIBB COMPANY-17285362

PATIENT
  Age: 49 Year
  Sex: Female
  Weight: 90.7 kg

DRUGS (3)
  1. ABILIFY TABS 10 MG [Suspect]
     Indication: ANXIETY
     Route: 048
     Dates: start: 2009
  2. ABILIFY TABS 10 MG [Suspect]
     Indication: MAJOR DEPRESSION
     Route: 048
     Dates: start: 2009
  3. LEXAPRO [Concomitant]

REACTIONS (4)
  - Insomnia [Unknown]
  - Nervousness [Unknown]
  - Restlessness [Unknown]
  - Drug ineffective [Unknown]
